FAERS Safety Report 8133905-9 (Version None)
Quarter: 2012Q1

REPORT INFORMATION
  Report Type: 
  Country: None (occurrence: None)
  Receive Date: 20120213
  Receipt Date: 20120203
  Transmission Date: 20120608
  Serious: Yes (Congenital Anomaly, Other)
  Sender: FDA-Public Use
  Company Number: AU-ABBOTT-12P-008-0900787-00

PATIENT
  Sex: Male
  Weight: 80 kg

DRUGS (3)
  1. RITONAVIR [Suspect]
     Indication: HIV INFECTION
     Route: 048
     Dates: start: 20110803
  2. DARUNAVIR ETHANOLATE [Suspect]
     Indication: HIV INFECTION
     Route: 048
     Dates: start: 20110803
  3. TRUVADA [Suspect]
     Indication: HIV INFECTION
     Dosage: 300/200MG
     Route: 048
     Dates: start: 20110803

REACTIONS (11)
  - MALIGNANT MELANOMA [None]
  - METASTASES TO LIVER [None]
  - ADRENAL MASS [None]
  - PULMONARY MASS [None]
  - LUNG CANCER METASTATIC [None]
  - LUNG CONSOLIDATION [None]
  - METASTASES TO BONE [None]
  - HILAR LYMPHADENOPATHY [None]
  - DIFFUSE LARGE B-CELL LYMPHOMA [None]
  - SOFT TISSUE MASS [None]
  - SMALL CELL LUNG CANCER STAGE UNSPECIFIED [None]
